FAERS Safety Report 5431171-6 (Version None)
Quarter: 2007Q3

REPORT INFORMATION
  Report Type: 
  Country: None (occurrence: None)
  Receive Date: 20070830
  Receipt Date: 20070424
  Transmission Date: 20080115
  Serious: No
  Sender: FDA-Public Use
  Company Number: A0643213A

PATIENT
  Age: 74 Year
  Sex: Female

DRUGS (9)
  1. WELLBUTRIN XL [Suspect]
     Indication: DEPRESSION
     Dosage: 300MG PER DAY
     Route: 048
     Dates: start: 20060301
  2. PIROXICAM [Concomitant]
  3. ATENOLOL [Concomitant]
  4. ALPRAZOLAM [Concomitant]
  5. LEVOTHYROXINE SODIUM [Concomitant]
  6. PLAVIX [Concomitant]
  7. FUROSEMIDE [Concomitant]
  8. CARBIDOPA [Concomitant]
  9. GABAPENTIN [Concomitant]

REACTIONS (4)
  - AGEUSIA [None]
  - LIP PAIN [None]
  - LIP SWELLING [None]
  - SWOLLEN TONGUE [None]
